FAERS Safety Report 5975610-0 (Version None)
Quarter: 2008Q4

REPORT INFORMATION
  Report Type: 
  Country: None (occurrence: None)
  Receive Date: 20081128
  Receipt Date: 20081112
  Transmission Date: 20090506
  Serious: Yes (Death)
  Sender: FDA-Public Use
  Company Number: 2008S1000519

PATIENT
  Age: 60 Year
  Sex: Female
  Weight: 80.0145 kg

DRUGS (5)
  1. ACITRETIN [Suspect]
     Indication: PSORIASIS
     Dosage: 25 MG; QD; PO
     Route: 048
     Dates: end: 20080101
  2. ALDACTONE [Concomitant]
  3. LOSARTAN POTASSIUM [Concomitant]
  4. HIXIZINE /00058401/ [Concomitant]
  5. UNSPECIFIED DRUGS [Concomitant]

REACTIONS (3)
  - CARDIAC FAILURE CONGESTIVE [None]
  - CONDITION AGGRAVATED [None]
  - PSORIASIS [None]
